FAERS Safety Report 13969231 (Version 3)
Quarter: 2017Q3

REPORT INFORMATION
  Report Type: Spontaneous
  Country: DK (occurrence: DK)
  Receive Date: 20170914
  Receipt Date: 20170928
  Transmission Date: 20171128
  Serious: Yes (Hospitalization, Disabling)
  Sender: FDA-Public Use
  Company Number: DK-IPSEN BIOPHARMACEUTICALS, INC.-2017-10531

PATIENT
  Age: 48 Year
  Sex: Female
  Weight: 50 kg

DRUGS (7)
  1. ELTROXIN [Concomitant]
     Active Substance: LEVOTHYROXINE
  2. AZZALURE [Suspect]
     Active Substance: BOTULINUM TOXIN TYPE A
     Indication: SKIN WRINKLING
     Dosage: 55 UNITS
     Route: 030
     Dates: start: 20140903, end: 20140903
  3. HYDROCYNOM [Concomitant]
  4. UNIKALK [Concomitant]
     Indication: CALCIUM METABOLISM DISORDER
  5. ETHALPA [Concomitant]
  6. LEVAXIN [Concomitant]
     Active Substance: LEVOTHYROXINE SODIUM
     Indication: HYPOMETABOLISM
  7. MABLET [Concomitant]

REACTIONS (31)
  - Lipoatrophy [Unknown]
  - Heart rate increased [Unknown]
  - Eye movement disorder [Unknown]
  - Injection site discomfort [Unknown]
  - Mental disability [Unknown]
  - Feeling abnormal [Not Recovered/Not Resolved]
  - Visual impairment [Unknown]
  - Headache [Unknown]
  - Vomiting [Unknown]
  - Vaginal haemorrhage [Unknown]
  - Migraine [Unknown]
  - Eye pain [Unknown]
  - Alopecia [Unknown]
  - Anxiety [Not Recovered/Not Resolved]
  - Poisoning [Unknown]
  - Dermatitis [Unknown]
  - Myalgia [Unknown]
  - Pain [Not Recovered/Not Resolved]
  - Nausea [Unknown]
  - Lid sulcus deepened [Unknown]
  - Dysaesthesia [Unknown]
  - Strabismus [Unknown]
  - Head discomfort [Unknown]
  - Malaise [Unknown]
  - Facial paresis [Unknown]
  - Diplopia [Unknown]
  - Dizziness [Unknown]
  - Dyspnoea [Unknown]
  - Burning sensation [Unknown]
  - Paraesthesia [Unknown]
  - Overdose [Unknown]

NARRATIVE: CASE EVENT DATE: 2014
